FAERS Safety Report 23136073 (Version 2)
Quarter: 2023Q4

REPORT INFORMATION
  Report Type: Spontaneous
  Country: US (occurrence: US)
  Receive Date: 20231102
  Receipt Date: 20231113
  Transmission Date: 20240109
  Serious: Yes (Hospitalization)
  Sender: FDA-Public Use
  Company Number: US-BRISTOL-MYERS SQUIBB COMPANY-2023-151614

PATIENT
  Age: 74 Year
  Sex: Female

DRUGS (2)
  1. LENALIDOMIDE [Suspect]
     Active Substance: LENALIDOMIDE
     Indication: Non-Hodgkin^s lymphoma
     Dosage: TAKE 1 CAPSULE BY MOUTH ONCE DAILY FOR 3 WEEKS ON AND 1 WEEK OFF
     Route: 048
     Dates: start: 20231016
  2. LENALIDOMIDE [Suspect]
     Active Substance: LENALIDOMIDE
     Dosage: TAKE 1 CAPSULE BY MOUTH ONCE DAILY FOR 3 WEEKS ON AND 1 WEEK OFF
     Route: 048

REACTIONS (3)
  - Cystitis [Unknown]
  - Dehydration [Unknown]
  - Off label use [Unknown]
